FAERS Safety Report 20134951 (Version 1)
Quarter: 2021Q4

REPORT INFORMATION
  Report Type: Spontaneous
  Country: US (occurrence: None)
  Receive Date: 20211130
  Receipt Date: 20211130
  Transmission Date: 20220303
  Serious: Yes (Hospitalization)
  Sender: FDA-Public Use
  Company Number: None

PATIENT
  Age: 81 Year
  Sex: Female
  Weight: 67.99 kg

DRUGS (10)
  1. IBRANCE [Suspect]
     Active Substance: PALBOCICLIB
     Indication: Breast cancer female
     Dosage: OTHER FREQUENCY : QDX21 DAYS, 7 OFF;?
     Route: 048
     Dates: start: 20200717
  2. LETROZOLE [Concomitant]
     Active Substance: LETROZOLE
  3. CALCIUM 600MG [Concomitant]
  4. VITAMIN D 400 UNIT [Concomitant]
  5. ATENOLOL [Concomitant]
     Active Substance: ATENOLOL
  6. ATORVASTATIN [Concomitant]
     Active Substance: ATORVASTATIN
  7. LOSARTAN [Concomitant]
     Active Substance: LOSARTAN
  8. VITAMINS [Concomitant]
     Active Substance: VITAMINS
  9. ELIQUIS [Concomitant]
     Active Substance: APIXABAN
  10. PROLIA [Concomitant]
     Active Substance: DENOSUMAB

REACTIONS (1)
  - Seizure [None]

NARRATIVE: CASE EVENT DATE: 20211120
